FAERS Safety Report 18973695 (Version 1)
Quarter: 2021Q1

REPORT INFORMATION
  Report Type: Spontaneous
  Country: US (occurrence: US)
  Receive Date: 20210305
  Receipt Date: 20210305
  Transmission Date: 20210420
  Serious: No
  Sender: FDA-Public Use
  Company Number: None

PATIENT
  Age: 76 Year
  Sex: Female
  Weight: 112.5 kg

DRUGS (2)
  1. HUMALOG PEN [Suspect]
     Active Substance: INSULIN LISPRO
     Dates: start: 20210223, end: 20210302
  2. ENOXAPARIN SODIUM. [Suspect]
     Active Substance: ENOXAPARIN SODIUM
     Indication: ATRIAL FIBRILLATION
     Route: 058
     Dates: start: 20210222, end: 20210301

REACTIONS (2)
  - Injection site haematoma [None]
  - Hyperglycaemia [None]

NARRATIVE: CASE EVENT DATE: 20210302
